FAERS Safety Report 8245444 (Version 4)
Quarter: 2012Q4

REPORT INFORMATION
  Report Type: 
  Country: JP (occurrence: JP)
  Receive Date: 20111115
  Receipt Date: 20120906
  Transmission Date: 20130627
  Serious: Yes (Other)
  Sender: FDA-Public Use
  Company Number: PHHY2011JP097816

PATIENT
  Age: 82 None
  Sex: Male
  Weight: 71 kg

DRUGS (4)
  1. GLIVEC [Suspect]
     Indication: ACUTE LYMPHOCYTIC LEUKAEMIA
     Dosage: 600 mg, Daily
     Route: 048
     Dates: start: 20111020, end: 20111024
  2. ONCOVIN [Concomitant]
     Dosage: 2 mg, daily
     Route: 041
     Dates: start: 20111013, end: 20111020
  3. PREDONINE [Concomitant]
     Dosage: 100 mg,
     Route: 042
     Dates: start: 20111013, end: 20111019
  4. PREDNISOLONE [Concomitant]
     Dosage: 70 mg,
     Route: 048
     Dates: start: 20111020, end: 20111114

REACTIONS (3)
  - Haemolysis [Unknown]
  - Haptoglobin decreased [Recovering/Resolving]
  - Reticulocyte count increased [Unknown]
